FAERS Safety Report 5928586-6 (Version None)
Quarter: 2008Q4

REPORT INFORMATION
  Report Type: 
  Country: None (occurrence: None)
  Receive Date: 20081021
  Receipt Date: 20080929
  Transmission Date: 20090506
  Serious: Yes (Life-Threatening)
  Sender: FDA-Public Use
  Company Number: 2008AL011184

PATIENT
  Age: 48 Year
  Sex: Male

DRUGS (3)
  1. CITALOPRAM HYDROBROMIDE [Suspect]
     Indication: DEPRESSION
     Dosage: 1400 MG; X1; PO
     Route: 048
     Dates: start: 20070201
  2. ZOPICLONE [Concomitant]
  3. FLUOXETINE [Concomitant]

REACTIONS (2)
  - GRAND MAL CONVULSION [None]
  - OVERDOSE [None]
